FAERS Safety Report 11800267 (Version 1)
Quarter: 2015Q4

REPORT INFORMATION
  Report Type: Spontaneous
  Country: CH (occurrence: CH)
  Receive Date: 20151203
  Receipt Date: 20151203
  Transmission Date: 20160305
  Serious: Yes (Disabling, Other)
  Sender: FDA-Public Use
  Company Number: CH-AMGEN-CHESP2015126323

PATIENT
  Age: 81 Year
  Sex: Female

DRUGS (7)
  1. PROLIA [Suspect]
     Active Substance: DENOSUMAB
     Indication: OSTEOPOROSIS POSTMENOPAUSAL
     Dosage: 60 MG, Q6MO
     Route: 058
     Dates: start: 20131011
  2. TORASEMIDE [Concomitant]
     Active Substance: TORSEMIDE
     Dosage: 5 MG, QD
     Route: 048
  3. CALCIMAGON D3 [Concomitant]
     Active Substance: CALCIUM\CHOLECALCIFEROL
     Dosage: 1 DF, QD
     Route: 048
  4. VI-DE 3 [Concomitant]
     Active Substance: CHOLECALCIFEROL
     Dosage: 10 GTT, QD
     Route: 048
  5. ELTROXIN [Concomitant]
     Active Substance: LEVOTHYROXINE
     Indication: THYROIDECTOMY
     Dosage: 0.1 MG, QD
     Route: 048
     Dates: start: 2002
  6. SINTROM [Concomitant]
     Active Substance: ACENOCOUMAROL
     Indication: ATRIAL FIBRILLATION
     Dosage: UNK
     Route: 048
     Dates: start: 2008
  7. METO ZEROK [Concomitant]
     Active Substance: METOPROLOL SUCCINATE
     Dosage: 50 MG, QD
     Route: 048

REACTIONS (5)
  - Spinal pain [Recovered/Resolved with Sequelae]
  - Multiple fractures [Recovered/Resolved with Sequelae]
  - Lumbar vertebral fracture [Recovered/Resolved with Sequelae]
  - Rebound effect [Recovered/Resolved with Sequelae]
  - Thoracic vertebral fracture [Recovered/Resolved with Sequelae]

NARRATIVE: CASE EVENT DATE: 20150501
